FAERS Safety Report 22184348 (Version 1)
Quarter: 2023Q2

REPORT INFORMATION
  Report Type: Spontaneous
  Country: FR (occurrence: FR)
  Receive Date: 20230407
  Receipt Date: 20230407
  Transmission Date: 20230722
  Serious: Yes (Hospitalization, Other)
  Sender: FDA-Public Use
  Company Number: FR-AFSSAPS-MP2023000646

PATIENT
  Age: 35 Year
  Sex: Female

DRUGS (17)
  1. CALCIUM [Suspect]
     Active Substance: CALCIUM
     Indication: Vitamin supplementation
     Dosage: 15 MILLIGRAM (JEUDI)
     Route: 048
  2. CALCIUM [Suspect]
     Active Substance: CALCIUM
     Dosage: 15 MILLIGRAM (LUNDI)
     Route: 048
  3. IRBESARTAN [Suspect]
     Active Substance: IRBESARTAN
     Indication: Product used for unknown indication
     Dosage: 300 MILLIGRAM, ONCE A DAY
     Route: 048
  4. PREDNISONE [Suspect]
     Active Substance: PREDNISONE
     Indication: Prophylaxis against graft versus host disease
     Dosage: 5 MILLIGRAM, ONCE A DAY
     Route: 048
  5. VALACYCLOVIR HYDROCHLORIDE [Suspect]
     Active Substance: VALACYCLOVIR HYDROCHLORIDE
     Indication: Antiviral prophylaxis
     Dosage: 500 MILLIGRAM, TWO TIMES A DAY
     Route: 048
  6. ATOVAQUONE AND PROGUANIL HCL [Suspect]
     Active Substance: ATOVAQUONE\PROGUANIL HYDROCHLORIDE
     Indication: Parasitic infection prophylaxis
     Dosage: 500 MILLIGRAM
     Route: 048
  7. CYCLOSPORINE [Suspect]
     Active Substance: CYCLOSPORINE
     Indication: Prophylaxis against graft versus host disease
     Dosage: 70 MILLIGRAM, TWO TIMES A DAY
     Route: 048
     Dates: start: 20230313
  8. CYCLOSPORINE [Suspect]
     Active Substance: CYCLOSPORINE
     Dosage: 90 MILLIGRAM, TWO TIMES A DAY
     Route: 048
     Dates: end: 20230313
  9. DAPAGLIFLOZIN [Suspect]
     Active Substance: DAPAGLIFLOZIN
     Indication: Product used for unknown indication
     Dosage: 10 MILLIGRAM, ONCE A DAY
     Route: 048
  10. ICLUSIG [Suspect]
     Active Substance: PONATINIB
     Indication: Acute myeloid leukaemia
     Dosage: 45 MILLIGRAM, ONCE A DAY
     Route: 048
     Dates: start: 202302, end: 20230313
  11. ICLUSIG [Suspect]
     Active Substance: PONATINIB
     Dosage: UNK
     Route: 048
     Dates: start: 2020, end: 2022
  12. SYMBICORT [Concomitant]
     Active Substance: BUDESONIDE\FORMOTEROL FUMARATE DIHYDRATE
     Indication: Product used for unknown indication
     Dosage: 1 DOSAGE FORM, TWO TIMES A DAY
  13. CETHEXONIUM BROMIDE [Concomitant]
     Active Substance: CETHEXONIUM BROMIDE
     Indication: Product used for unknown indication
     Dosage: 1 GTT DROPS, TWO TIMES A DAY
  14. Flucon [Concomitant]
     Indication: Product used for unknown indication
     Dosage: 1 GTT DROPS, TWO TIMES A DAY
  15. RETINOL [Concomitant]
     Active Substance: RETINOL
     Indication: Product used for unknown indication
     Dosage: UNK
  16. SPIRIVA [Concomitant]
     Active Substance: TIOTROPIUM BROMIDE MONOHYDRATE
     Indication: Product used for unknown indication
     Dosage: 1 DOSAGE FORM, ONCE A DAY
  17. BORIC ACID\SODIUM BORATE [Concomitant]
     Active Substance: BORIC ACID\SODIUM BORATE
     Indication: Product used for unknown indication
     Dosage: UNK

REACTIONS (1)
  - Ischaemic stroke [Recovered/Resolved]

NARRATIVE: CASE EVENT DATE: 20230313
